FAERS Safety Report 14302383 (Version 1)
Quarter: 2017Q4

REPORT INFORMATION
  Report Type: Spontaneous
  Country: US (occurrence: US)
  Receive Date: 20171219
  Receipt Date: 20171219
  Transmission Date: 20180321
  Serious: No
  Sender: FDA-Public Use
  Company Number: US-SUPERNUS PHARMACEUTICALS, INC.-2017SUP00107

PATIENT
  Sex: Male
  Weight: 92.97 kg

DRUGS (9)
  1. ASPIRIN. [Concomitant]
     Active Substance: ASPIRIN
     Dosage: 81 MG, 1X/DAY
  2. DIOVAN HCT [Concomitant]
     Active Substance: HYDROCHLOROTHIAZIDE\VALSARTAN
     Dosage: 160/25 MG, 1X/DAY
  3. TROKENDI XR [Suspect]
     Active Substance: TOPIRAMATE
     Dosage: 100 MG, UNK
     Dates: start: 2017, end: 2017
  4. TROKENDI XR [Suspect]
     Active Substance: TOPIRAMATE
     Dosage: 125 MG, UNK
     Dates: start: 2017, end: 2017
  5. OMEGA 3 [Concomitant]
     Active Substance: OMEGA-3 FATTY ACIDS
     Dosage: 1 G, 1X/DAY
  6. TOPRIMATE (IMMEDIATE RELEASE) [Concomitant]
     Dosage: UNK, 2X/DAY
     Dates: start: 201702
  7. LOPRESSOR [Concomitant]
     Active Substance: METOPROLOL TARTRATE
     Dosage: 50 MG, 1X/DAY
  8. TROKENDI XR [Suspect]
     Active Substance: TOPIRAMATE
     Indication: ESSENTIAL TREMOR
     Dosage: 50 MG, 1X/DAY
     Route: 048
     Dates: start: 20170430, end: 2017
  9. TRICOR [Concomitant]
     Active Substance: FENOFIBRATE
     Dosage: 48 MG, 1X/DAY

REACTIONS (5)
  - Muscle spasms [Recovered/Resolved]
  - Product use in unapproved indication [Recovered/Resolved]
  - Cough [Recovered/Resolved]
  - Decreased appetite [Recovered/Resolved]
  - Upper-airway cough syndrome [Recovered/Resolved]

NARRATIVE: CASE EVENT DATE: 2017
